FAERS Safety Report 19256806 (Version 2)
Quarter: 2021Q2

REPORT INFORMATION
  Report Type: Report from Study
  Country: DE (occurrence: DE)
  Receive Date: 20210513
  Receipt Date: 20210603
  Transmission Date: 20210717
  Serious: Yes (Death)
  Sender: FDA-Public Use
  Company Number: DE-PFIZER INC-2021515513

PATIENT
  Age: 51 Year
  Sex: Male

DRUGS (4)
  1. CISPLATIN. [Suspect]
     Active Substance: CISPLATIN
     Indication: OESOPHAGEAL SQUAMOUS CELL CARCINOMA
     Dosage: 50 MG/M2, CYCLIC, (1 H INFUSION) ON WEEKS 1,3,5 1?12
     Dates: start: 20071001
  2. CAMPTO [Suspect]
     Active Substance: IRINOTECAN
     Indication: OESOPHAGEAL SQUAMOUS CELL CARCINOMA
     Dosage: 80 MG/M2, CYCLIC (1 H INFUSION, WEEKLY DURING WEEKS 1?6 AND 8?12) 1?12
     Dates: start: 20071001
  3. FLUOROURACIL. [Suspect]
     Active Substance: FLUOROURACIL
     Indication: OESOPHAGEAL SQUAMOUS CELL CARCINOMA
     Dosage: 2 G/M2 (24 H?INFUSION) 1?12
     Dates: start: 20071001
  4. CALCIUM FOLINATE [Suspect]
     Active Substance: LEUCOVORIN CALCIUM
     Indication: OESOPHAGEAL SQUAMOUS CELL CARCINOMA
     Dosage: 500 MG/M2, CYCLIC (2 H INFUSION) 1?12
     Dates: start: 20071001

REACTIONS (2)
  - Device related thrombosis [Unknown]
  - Pneumonia [Unknown]
